FAERS Safety Report 9280177 (Version 1)
Quarter: 2013Q2

REPORT INFORMATION
  Report Type: Report from Study
  Country: CA (occurrence: CA)
  Receive Date: 20130509
  Receipt Date: 20130509
  Transmission Date: 20140414
  Serious: Yes (Other)
  Sender: FDA-Public Use
  Company Number: CA-JNJFOC-20130501224

PATIENT
  Age: 84 Year
  Sex: Female
  Weight: 36 kg

DRUGS (8)
  1. REMICADE [Suspect]
     Indication: ARTHRITIS
     Route: 042
  2. METHOTREXATE [Concomitant]
     Route: 065
  3. CELEBREX [Concomitant]
     Route: 065
  4. COZAAR [Concomitant]
     Route: 065
  5. NORVASC [Concomitant]
     Route: 065
  6. MORPHINE [Concomitant]
     Route: 065
  7. PREVACID [Concomitant]
     Route: 065
  8. NORTRIPTYLINE [Concomitant]
     Route: 065

REACTIONS (5)
  - Patella fracture [Unknown]
  - Tibia fracture [Unknown]
  - Fall [Unknown]
  - Head injury [Unknown]
  - Limb injury [Unknown]
